FAERS Safety Report 6026245-5 (Version None)
Quarter: 2008Q4

REPORT INFORMATION
  Report Type: 
  Country: None (occurrence: None)
  Receive Date: 20081222
  Receipt Date: 20080929
  Transmission Date: 20090506
  Serious: No
  Sender: FDA-Public Use
  Company Number: ALL1-2008-02820

PATIENT
  Age: 9 Year
  Sex: Male
  Weight: 29.5 kg

DRUGS (3)
  1. VYVANSE [Suspect]
     Indication: ATTENTION DEFICIT/HYPERACTIVITY DISORDER
     Dosage: 30 MG, 1X/DAY:QD, ORAL
     Route: 048
     Dates: start: 20080906, end: 20080918
  2. ADVAIR DISKUS 100/50 [Concomitant]
  3. SINGULAIR /01362601/ (MONTELUKAST) [Concomitant]

REACTIONS (1)
  - TIC [None]
